FAERS Safety Report 9510765 (Version 1)
Quarter: 2013Q3

REPORT INFORMATION
  Report Type: Report from Study
  Country: IT (occurrence: IT)
  Receive Date: 20130910
  Receipt Date: 20130910
  Transmission Date: 20140515
  Serious: Yes (Other)
  Sender: FDA-Public Use
  Company Number: IT-ROCHE-1270260

PATIENT
  Sex: 0

DRUGS (10)
  1. MYCOPHENOLATE MOFETIL [Suspect]
     Indication: PROPHYLAXIS AGAINST TRANSPLANT REJECTION
     Dosage: P.O. DAY 1
     Route: 048
  2. MYCOPHENOLATE MOFETIL [Suspect]
     Dosage: REDUCED TO 500 MG B.I.D. BY DAY 15
     Route: 048
  3. TACROLIMUS [Suspect]
     Indication: PROPHYLAXIS AGAINST TRANSPLANT REJECTION
     Dosage: P.O. DAY 1,
     Route: 048
  4. TACROLIMUS [Suspect]
     Dosage: THEN THE DOSE WAS ADJUSTED TO TARGET AND MAINTAIN A TROUGH BLOOD LEVEL (C0) OF 8-12 NG/ML TILL MONTH
     Route: 048
  5. BASILIXIMAB [Suspect]
     Indication: PROPHYLAXIS AGAINST TRANSPLANT REJECTION
     Dosage: ON DAY 0 AND ON DAY 4, AS INDUCTION THERAPY.
     Route: 042
  6. METHYLPREDNISOLONE [Suspect]
     Indication: PROPHYLAXIS AGAINST TRANSPLANT REJECTION
     Dosage: ON DAY 0 INTRA-OPERATIVELY
     Route: 042
  7. METHYLPREDNISOLONE [Suspect]
     Dosage: ON DAY 1.
     Route: 042
  8. PREDNISONE [Suspect]
     Indication: PROPHYLAXIS AGAINST TRANSPLANT REJECTION
     Dosage: FROM DAY 2.
     Route: 048
  9. PREDNISONE [Suspect]
     Dosage: BY DAY 30
     Route: 048
  10. PREDNISONE [Suspect]
     Dosage: BY DAY 90
     Route: 048

REACTIONS (1)
  - Kaposi^s sarcoma [Unknown]
